FAERS Safety Report 6666282-0 (Version None)
Quarter: 2010Q2

REPORT INFORMATION
  Report Type: 
  Country: None (occurrence: None)
  Receive Date: 20100402
  Receipt Date: 20100322
  Transmission Date: 20101027
  Serious: No
  Sender: FDA-Public Use
  Company Number: US-ELI_LILLY_AND_COMPANY-US201003006045

PATIENT
  Sex: Female

DRUGS (3)
  1. CYMBALTA [Suspect]
  2. INTERFERON BETA-1A [Concomitant]
     Dosage: 1 D/F, UNK
  3. INTERFERON BETA-1A [Concomitant]
     Dosage: 22 UG, UNK

REACTIONS (1)
  - LIVER FUNCTION TEST ABNORMAL [None]
